FAERS Safety Report 9397186 (Version 4)
Quarter: 2013Q3

REPORT INFORMATION
  Report Type: Spontaneous
  Country: US (occurrence: US)
  Receive Date: 20130712
  Receipt Date: 20130820
  Transmission Date: 20140515
  Serious: Yes (Hospitalization, Other)
  Sender: FDA-Public Use
  Company Number: PHEH2013US014620

PATIENT
  Age: 81 Year
  Sex: Male

DRUGS (7)
  1. EXELON PATCH [Suspect]
     Indication: DEMENTIA
     Dosage: 4.6 MG DAILY
     Route: 062
  2. EXELON PATCH [Suspect]
     Dosage: 4.6 MG, DAILY
     Route: 062
  3. TERAZOSIN [Concomitant]
     Dosage: UNK UKN, UNK
  4. ASPIRIN [Concomitant]
     Dosage: UNK UKN, UNK
  5. ASMANEX [Concomitant]
  6. PRILOSEC [Concomitant]
     Dosage: UNK UKN, UNK
  7. PRAVACHOL [Concomitant]
     Dosage: UNK UKN, UNK

REACTIONS (14)
  - Muscular weakness [Not Recovered/Not Resolved]
  - Vomiting [Unknown]
  - Somnolence [Not Recovered/Not Resolved]
  - Fall [Unknown]
  - Brain natriuretic peptide increased [Unknown]
  - Cerebral atrophy [Unknown]
  - Speech disorder [Unknown]
  - Dry mouth [Unknown]
  - Chest pain [Unknown]
  - Loss of consciousness [Recovered/Resolved]
  - Syncope [Unknown]
  - Acne [Unknown]
  - Rash [Unknown]
  - Pruritus [Unknown]
